FAERS Safety Report 9490638 (Version 2)
Quarter: 2013Q3

REPORT INFORMATION
  Report Type: Report from Study
  Country: US (occurrence: US)
  Receive Date: 20130830
  Receipt Date: 20130902
  Transmission Date: 20140515
  Serious: Yes (Other)
  Sender: FDA-Public Use
  Company Number: PHEH2013US018232

PATIENT
  Sex: Female
  Weight: 70.7 kg

DRUGS (8)
  1. GILENYA [Suspect]
     Indication: MULTIPLE SCLEROSIS
     Dosage: 0.5 MG, QD
     Route: 048
     Dates: start: 20111209
  2. CHANTIX [Concomitant]
  3. MULTI-VIT [Concomitant]
  4. FLAXSEED OIL [Concomitant]
  5. VITAMIIN C [Concomitant]
  6. CALCIUM [Concomitant]
  7. B COMPLEX [Concomitant]
  8. OPC 3 [Concomitant]

REACTIONS (2)
  - Cystitis [Unknown]
  - Blood pressure fluctuation [Unknown]
